FAERS Safety Report 20943197 (Version 2)
Quarter: 2022Q3

REPORT INFORMATION
  Report Type: Spontaneous
  Country: US (occurrence: US)
  Receive Date: 20220610
  Receipt Date: 20220701
  Transmission Date: 20221027
  Serious: No
  Sender: FDA-Public Use
  Company Number: US-LEO Pharma-343194

PATIENT
  Sex: Male

DRUGS (1)
  1. ADBRY [Suspect]
     Active Substance: TRALOKINUMAB-LDRM
     Indication: Dermatitis atopic
     Dosage: DOSAGE : INITIAL DOSAGE NOT REPORTED, THEN 300 MG EVERY TWO WEEKS SUBCUTANEOUSLY AND REPORTED AS ONG
     Route: 058
     Dates: start: 202204

REACTIONS (2)
  - Tinea pedis [Unknown]
  - Blister [Unknown]
